FAERS Safety Report 21674125 (Version 1)
Quarter: 2022Q4

REPORT INFORMATION
  Report Type: Spontaneous
  Country: US (occurrence: US)
  Receive Date: 20221202
  Receipt Date: 20221202
  Transmission Date: 20230113
  Serious: No
  Sender: FDA-Public Use
  Company Number: US-PFIZER INC-202201339879

PATIENT
  Age: 78 Year
  Sex: Female

DRUGS (1)
  1. LEVOTHYROXINE SODIUM [Suspect]
     Active Substance: LEVOTHYROXINE SODIUM
     Dosage: UNK
     Dates: start: 2010

REACTIONS (6)
  - Feeling abnormal [Unknown]
  - Peripheral swelling [Unknown]
  - Headache [Unknown]
  - Dyspnoea [Unknown]
  - Hair disorder [Unknown]
  - Skin disorder [Unknown]
